FAERS Safety Report 14163630 (Version 4)
Quarter: 2019Q1

REPORT INFORMATION
  Report Type: Spontaneous
  Country: US (occurrence: US)
  Receive Date: 20171107
  Receipt Date: 20190305
  Transmission Date: 20190417
  Serious: Yes (Other)
  Sender: FDA-Public Use
  Company Number: US-BRISTOL-MYERS SQUIBB COMPANY-BMS-2017-098426

PATIENT
  Age: 80 Year
  Sex: Female

DRUGS (4)
  1. OPDIVO [Suspect]
     Active Substance: NIVOLUMAB
     Indication: MALIGNANT MELANOMA
     Dosage: 240 MG, Q2WK
     Route: 042
     Dates: start: 20160824, end: 20170804
  2. GANCICLOVIR. [Concomitant]
     Active Substance: GANCICLOVIR
     Indication: HERPES OPHTHALMIC
     Route: 065
  3. VALACICLOVIR [Concomitant]
     Active Substance: VALACYCLOVIR HYDROCHLORIDE
     Indication: HERPES OPHTHALMIC
     Route: 065
  4. LOTEPREDNOL [Concomitant]
     Active Substance: LOTEPREDNOL
     Indication: HERPES OPHTHALMIC
     Route: 065

REACTIONS (1)
  - Ulcerative keratitis [Recovered/Resolved]

NARRATIVE: CASE EVENT DATE: 201612
